FAERS Safety Report 16846778 (Version 5)
Quarter: 2020Q4

REPORT INFORMATION
  Report Type: Report from Study
  Country: DE (occurrence: DE)
  Receive Date: 20190924
  Receipt Date: 20201229
  Transmission Date: 20210113
  Serious: Yes (Hospitalization)
  Sender: FDA-Public Use
  Company Number: PHHY2019DE220486

PATIENT
  Age: 6 Year
  Sex: Female
  Weight: 19.3 kg

DRUGS (4)
  1. COLCHICINE. [Concomitant]
     Active Substance: COLCHICINE
     Indication: FAMILIAL MEDITERRANEAN FEVER
     Dosage: 1 MG, QD
     Route: 048
     Dates: start: 20170131
  2. COLCHICINE. [Concomitant]
     Active Substance: COLCHICINE
     Dosage: UNK
     Route: 065
  3. ILARIS [Suspect]
     Active Substance: CANAKINUMAB
     Indication: FAMILIAL MEDITERRANEAN FEVER
     Dosage: 2 MG/KG, UNK
     Route: 058
     Dates: start: 20181203
  4. ILARIS [Suspect]
     Active Substance: CANAKINUMAB
     Dosage: 4 MG, UNK
     Route: 058
     Dates: start: 20190603

REACTIONS (2)
  - Tonsillitis [Recovered/Resolved]
  - Tonsillitis [Unknown]

NARRATIVE: CASE EVENT DATE: 20190624
